FAERS Safety Report 6363731-2 (Version None)
Quarter: 2009Q3

REPORT INFORMATION
  Report Type: 
  Country: None (occurrence: None)
  Receive Date: 20090919
  Receipt Date: 20090701
  Transmission Date: 20100115
  Serious: No
  Sender: FDA-Public Use
  Company Number: US-ABBOTT-09P-163-0583541-00

PATIENT
  Sex: Female
  Weight: 93.524 kg

DRUGS (12)
  1. HUMIRA [Suspect]
     Indication: RHEUMATOID ARTHRITIS
     Route: 058
     Dates: start: 20071110
  2. LOVAXIN [Concomitant]
     Indication: DRUG USE FOR UNKNOWN INDICATION
  3. PROTONIX [Concomitant]
     Indication: DRUG USE FOR UNKNOWN INDICATION
  4. DILTIAZEM HCL [Concomitant]
     Indication: DRUG USE FOR UNKNOWN INDICATION
  5. NITROGLYCERIN [Concomitant]
     Indication: DRUG USE FOR UNKNOWN INDICATION
  6. ZOLOFT [Concomitant]
     Indication: DRUG USE FOR UNKNOWN INDICATION
  7. PRAVASTATIN [Concomitant]
     Indication: BLOOD CHOLESTEROL INCREASED
  8. ATENOLOL [Concomitant]
     Indication: DRUG USE FOR UNKNOWN INDICATION
  9. GLYCERIN [Concomitant]
     Indication: DRUG USE FOR UNKNOWN INDICATION
  10. POTASSIUM CHLORIDE [Concomitant]
     Indication: DRUG USE FOR UNKNOWN INDICATION
  11. UNKNOWN WATER PILL [Concomitant]
     Indication: DRUG USE FOR UNKNOWN INDICATION
  12. METAMUCIL [Concomitant]
     Indication: BOWEL MOVEMENT IRREGULARITY
     Route: 048

REACTIONS (5)
  - DIARRHOEA [None]
  - DRY SKIN [None]
  - PRURITUS [None]
  - RASH [None]
  - RASH PAPULAR [None]
